FAERS Safety Report 5610931-2 (Version None)
Quarter: 2008Q1

REPORT INFORMATION
  Report Type: 
  Country: None (occurrence: None)
  Receive Date: 20080128
  Receipt Date: 20080111
  Transmission Date: 20080703
  Serious: Yes (Hospitalization, Other)
  Sender: FDA-Public Use
  Company Number: IMP_03478_2008

PATIENT
  Age: 58 Year
  Sex: Male

DRUGS (2)
  1. BUDEPRION 300 MG (NOT SPECIFIED) [Suspect]
     Indication: DEPRESSION
     Dosage: 300 MG QD
     Dates: start: 20050101, end: 20071127
  2. INSULIN [Concomitant]

REACTIONS (1)
  - GRAND MAL CONVULSION [None]
